FAERS Safety Report 9020216 (Version 1)
Quarter: 2013Q1

REPORT INFORMATION
  Report Type: Spontaneous
  Country: US (occurrence: US)
  Receive Date: 20130119
  Receipt Date: 20130119
  Transmission Date: 20140127
  Serious: No
  Sender: FDA-Public Use
  Company Number: US-ALLERGAN-1210041US

PATIENT
  Age: 38 Year
  Sex: Female

DRUGS (3)
  1. BOTOX? [Suspect]
     Indication: MUSCLE SPASTICITY
     Dosage: 400 UNITS, UNK
     Route: 030
  2. BOTOX? [Suspect]
     Indication: MUSCLE SPASTICITY
  3. BOTOX? [Suspect]
     Indication: MUSCLE SPASTICITY

REACTIONS (3)
  - Petechiae [Unknown]
  - Injection site rash [Recovered/Resolved]
  - Injection site rash [Recovered/Resolved]
